FAERS Safety Report 7542881-9 (Version None)
Quarter: 2011Q2

REPORT INFORMATION
  Report Type: 
  Country: None (occurrence: None)
  Receive Date: 20110613
  Receipt Date: 20110531
  Transmission Date: 20111010
  Serious: Yes (Hospitalization, Other)
  Sender: FDA-Public Use
  Company Number: PHHY2011BR48041

PATIENT
  Sex: Male

DRUGS (1)
  1. EXFORGE [Suspect]
     Indication: HYPERTENSION
     Dosage: 1 DF (320 MG OF VALS AND 5 MG OF AMLO) DAILY
     Route: 048

REACTIONS (3)
  - HEART RATE INCREASED [None]
  - ARTERIAL CATHETERISATION [None]
  - CORONARY ARTERY OCCLUSION [None]
